FAERS Safety Report 22082515 (Version 2)
Quarter: 2023Q1

REPORT INFORMATION
  Report Type: Spontaneous
  Country: US (occurrence: US)
  Receive Date: 20230310
  Receipt Date: 20230329
  Transmission Date: 20230418
  Serious: No
  Sender: FDA-Public Use
  Company Number: US-BRISTOL-MYERS SQUIBB COMPANY-2023-031351

PATIENT
  Age: 74 Year
  Sex: Female
  Weight: 55.34 kg

DRUGS (1)
  1. POMALYST [Suspect]
     Active Substance: POMALIDOMIDE
     Indication: Plasma cell myeloma
     Dosage: DAILY FOR 21DAYS AND 7 DAYS OFF
     Route: 048
     Dates: start: 20210701

REACTIONS (3)
  - Malaise [Unknown]
  - Streptococcus test positive [Unknown]
  - General physical health deterioration [Unknown]
